FAERS Safety Report 25840989 (Version 1)
Quarter: 2025Q3

REPORT INFORMATION
  Report Type: Spontaneous
  Country: US (occurrence: US)
  Receive Date: 20250924
  Receipt Date: 20250924
  Transmission Date: 20251020
  Serious: No
  Sender: PFIZER
  Company Number: US-PFIZER INC-202500186616

PATIENT
  Sex: Female

DRUGS (1)
  1. STERILE WATER [Suspect]
     Active Substance: WATER

REACTIONS (1)
  - Burning sensation [Unknown]
